FAERS Safety Report 7684791-2 (Version None)
Quarter: 2011Q3

REPORT INFORMATION
  Report Type: 
  Country: None (occurrence: None)
  Receive Date: 20110810
  Receipt Date: 20110726
  Transmission Date: 20111222
  Serious: Yes (Hospitalization, Other)
  Sender: FDA-Public Use
  Company Number: 2011P1007376

PATIENT
  Age: 62 Year
  Sex: Female
  Weight: 74.3899 kg

DRUGS (17)
  1. FENTANYL [Suspect]
     Indication: FIBROMYALGIA
     Dosage: Q3D;TDER
     Route: 062
     Dates: start: 20110511, end: 20110601
  2. FENTANYL [Suspect]
     Indication: DEVICE LEAKAGE
     Dosage: Q3D;TDER
     Route: 062
     Dates: start: 20110511, end: 20110601
  3. FENTANYL [Suspect]
     Indication: SURGERY
     Dosage: Q3D;TDER
     Route: 062
     Dates: start: 20110511, end: 20110601
  4. FENTANYL [Suspect]
     Indication: BACK PAIN
     Dosage: Q3D;TDER
     Route: 062
     Dates: start: 20110511, end: 20110601
  5. UNSPECIFIED HIGH BLOOD PRESSURE MEDICATION [Concomitant]
  6. FENTANYL [Suspect]
     Indication: BACK PAIN
     Dosage: 36,000 MCG; PARN
     Route: 051
  7. FENTANYL [Suspect]
     Indication: FIBROMYALGIA
     Dosage: 36,000 MCG; PARN
     Route: 051
  8. FENTANYL [Suspect]
     Indication: DEVICE LEAKAGE
     Dosage: 36,000 MCG; PARN
     Route: 051
  9. FENTANYL [Suspect]
     Indication: SURGERY
     Dosage: 36,000 MCG; PARN
     Route: 051
  10. LOVAZA [Suspect]
     Indication: BLOOD CHOLESTEROL INCREASED
     Dosage: 2 TABLETS; QD
     Dates: start: 20110707, end: 20110712
  11. FENTANYL [Suspect]
     Indication: BACK PAIN
     Dosage: Q3D;TDER
     Route: 062
     Dates: start: 20110511, end: 20110601
  12. FENTANYL [Suspect]
     Indication: FIBROMYALGIA
     Dosage: Q3D;TDER
     Route: 062
     Dates: start: 20110511, end: 20110601
  13. FENTANYL [Suspect]
     Indication: SURGERY
     Dosage: Q3D;TDER
     Route: 062
     Dates: start: 20110511, end: 20110601
  14. FENTANYL [Suspect]
     Indication: DEVICE LEAKAGE
     Dosage: Q3D;TDER
     Route: 062
     Dates: start: 20110511, end: 20110601
  15. SYNTHROID [Concomitant]
  16. PREMARIN [Concomitant]
  17. CRESTOR [Suspect]
     Indication: BLOOD CHOLESTEROL INCREASED
     Dosage: 10 MG;QD
     Dates: end: 20110401

REACTIONS (13)
  - WEIGHT INCREASED [None]
  - MUSCULOSKELETAL STIFFNESS [None]
  - URINE ANALYSIS ABNORMAL [None]
  - POSTURE ABNORMAL [None]
  - ERYTHEMA [None]
  - ACCIDENTAL OVERDOSE [None]
  - SYNCOPE [None]
  - MUSCLE RIGIDITY [None]
  - INCORRECT ROUTE OF DRUG ADMINISTRATION [None]
  - FEELING HOT [None]
  - RENAL IMPAIRMENT [None]
  - ALOPECIA [None]
  - RENAL DISORDER [None]
